FAERS Safety Report 7302251-5 (Version None)
Quarter: 2011Q1

REPORT INFORMATION
  Report Type: 
  Country: None (occurrence: None)
  Receive Date: 20110218
  Receipt Date: 20110215
  Transmission Date: 20110831
  Serious: Yes (Life-Threatening, Other)
  Sender: FDA-Public Use
  Company Number: A0913786A

PATIENT
  Age: 76 Year
  Sex: Male

DRUGS (6)
  1. DEXAMETHASONE [Concomitant]
  2. ARZERRA [Suspect]
     Dosage: 2000MG WEEKLY
     Route: 042
     Dates: start: 20110101
  3. MULTI-VITAMIN [Concomitant]
  4. TYLENOL [Concomitant]
  5. FAMOTIDINE [Concomitant]
  6. BENADRYL [Concomitant]

REACTIONS (3)
  - POLYCYTHAEMIA [None]
  - HAEMOGLOBIN INCREASED [None]
  - HAEMATOCRIT INCREASED [None]
